FAERS Safety Report 6798301-5 (Version None)
Quarter: 2010Q2

REPORT INFORMATION
  Report Type: 
  Country: None (occurrence: None)
  Receive Date: 20100623
  Receipt Date: 20100607
  Transmission Date: 20101027
  Serious: No
  Sender: FDA-Public Use
  Company Number: APP201000525

PATIENT
  Age: 34 Year
  Sex: Female

DRUGS (1)
  1. VANCOMYCIN HYDROCHLORIDE [Suspect]
     Indication: PARONYCHIA
     Dosage: 1 GM, INFUSED OVER 1 HOUR, INTRAVENOUS
     Route: 042

REACTIONS (5)
  - ABDOMINAL PAIN [None]
  - ERYTHEMA [None]
  - FLUSHING [None]
  - RESTLESSNESS [None]
  - VAGINAL HAEMORRHAGE [None]
